FAERS Safety Report 10639392 (Version 3)
Quarter: 2015Q2

REPORT INFORMATION
  Report Type: Report from Study
  Country: US (occurrence: US)
  Receive Date: 20141208
  Receipt Date: 20150409
  Transmission Date: 20150821
  Serious: Yes (Hospitalization)
  Sender: FDA-Public Use
  Company Number: PHEH2014US023730

PATIENT
  Age: 64 Year
  Sex: Female
  Weight: 58.1 kg

DRUGS (3)
  1. CLOZARIL [Suspect]
     Active Substance: CLOZAPINE
     Indication: HALLUCINATION
     Dosage: DOSE INCREASED TO 100 MG AT NIGHT
     Route: 048
  2. CLOZARIL [Suspect]
     Active Substance: CLOZAPINE
     Indication: PARANOIA
  3. CLOZARIL [Suspect]
     Active Substance: CLOZAPINE
     Indication: AGITATION
     Dosage: 100 MG, QD
     Route: 048

REACTIONS (8)
  - Dementia [Recovering/Resolving]
  - Paranoia [Recovering/Resolving]
  - Delirium [Recovering/Resolving]
  - Agitation [Recovering/Resolving]
  - Delusion [Recovering/Resolving]
  - Cognitive disorder [Unknown]
  - Abnormal behaviour [Recovering/Resolving]
  - Product use issue [Unknown]

NARRATIVE: CASE EVENT DATE: 20141117
